FAERS Safety Report 19041707 (Version 2)
Quarter: 2021Q1

REPORT INFORMATION
  Report Type: Report from Study
  Country: CA (occurrence: CA)
  Receive Date: 20210322
  Receipt Date: 20210326
  Transmission Date: 20210420
  Serious: Yes (Other)
  Sender: FDA-Public Use
  Company Number: CA-ASTRAZENECA-2021A160981

PATIENT
  Sex: Male

DRUGS (13)
  1. OLANZAPINE. [Concomitant]
     Active Substance: OLANZAPINE
  2. VITAMIN B12 [Concomitant]
     Active Substance: CYANOCOBALAMIN
  3. RANITIDINE. [Concomitant]
     Active Substance: RANITIDINE
  4. TAMSULOSIN [Concomitant]
     Active Substance: TAMSULOSIN
  5. OMEPRAZOLE. [Suspect]
     Active Substance: OMEPRAZOLE
     Dosage: DOSE UNKNOWN
     Route: 048
  6. ATACAND PLUS [Concomitant]
     Active Substance: CANDESARTAN CILEXETIL\HYDROCHLOROTHIAZIDE
  7. CRESTOR [Concomitant]
     Active Substance: ROSUVASTATIN CALCIUM
  8. LUTEIN [Concomitant]
     Active Substance: LUTEIN
  9. ZOPICLONE [Concomitant]
     Active Substance: ZOPICLONE
  10. ATENOLOL. [Concomitant]
     Active Substance: ATENOLOL
  11. VITAMIN D3 [Concomitant]
     Active Substance: CHOLECALCIFEROL
  12. FINASTERIDE. [Concomitant]
     Active Substance: FINASTERIDE
  13. CALQUENCE [Suspect]
     Active Substance: ACALABRUTINIB
     Indication: CHRONIC LYMPHOCYTIC LEUKAEMIA
     Route: 048
     Dates: start: 20210223

REACTIONS (3)
  - Gastrooesophageal reflux disease [Recovering/Resolving]
  - Rebound effect [Recovering/Resolving]
  - Dyspepsia [Recovering/Resolving]
